FAERS Safety Report 4996771-6 (Version None)
Quarter: 2006Q2

REPORT INFORMATION
  Report Type: 
  Country: None (occurrence: None)
  Receive Date: 20060509
  Receipt Date: 20050125
  Transmission Date: 20061013
  Serious: Yes (Hospitalization, Disabling)
  Sender: FDA-Public Use
  Company Number: US-MERCK-0501USA04136

PATIENT
  Age: 51 Year
  Sex: Female
  Weight: 49 kg

DRUGS (1)
  1. VIOXX [Suspect]
     Indication: RHEUMATOID ARTHRITIS
     Route: 048
     Dates: start: 20010522, end: 20040101

REACTIONS (6)
  - CEREBROVASCULAR ACCIDENT [None]
  - DEPRESSION [None]
  - HEADACHE [None]
  - INSOMNIA [None]
  - PERONEAL NERVE PALSY [None]
  - SINUS DISORDER [None]
